FAERS Safety Report 22835203 (Version 3)
Quarter: 2024Q3

REPORT INFORMATION
  Report Type: Other
  Country: GB (occurrence: GB)
  Receive Date: 20230818
  Receipt Date: 20240709
  Transmission Date: 20241017
  Serious: Yes (Hospitalization, Other)
  Sender: STRIDES
  Company Number: None

PATIENT
  Age: 38 Year
  Sex: Male

DRUGS (70)
  1. HALOPERIDOL [Suspect]
     Active Substance: HALOPERIDOL
     Indication: Product used for unknown indication
     Dosage: UNK
     Route: 065
  2. LORAZEPAM [Suspect]
     Active Substance: LORAZEPAM
     Indication: Product used for unknown indication
     Dosage: 1 MILLIGRAM, BID ( (PO/IM) 1-2MG (MAX 4MG IN 24 HOURS
     Route: 065
     Dates: start: 201509
  3. CITALOPRAM [Suspect]
     Active Substance: CITALOPRAM\CITALOPRAM HYDROBROMIDE
     Indication: Depressed mood
     Dosage: 20 MILLIGRAM, QD (20 MG, QD)
     Route: 065
     Dates: start: 200301
  4. CITALOPRAM [Suspect]
     Active Substance: CITALOPRAM\CITALOPRAM HYDROBROMIDE
     Dosage: 20 MILLIGRAM, QD (20 MG, QD)
     Route: 065
     Dates: start: 200311
  5. CITALOPRAM [Suspect]
     Active Substance: CITALOPRAM\CITALOPRAM HYDROBROMIDE
     Dosage: 20 MILLIGRAM, QD (20 MG, QD)
     Route: 065
     Dates: start: 200407
  6. CITALOPRAM [Suspect]
     Active Substance: CITALOPRAM\CITALOPRAM HYDROBROMIDE
     Dosage: 20 MILLIGRAM, QD (20 MG, QD)
     Route: 065
     Dates: start: 200411
  7. CITALOPRAM [Suspect]
     Active Substance: CITALOPRAM\CITALOPRAM HYDROBROMIDE
     Dosage: 20 MILLIGRAM, QD (20 MG, QD)
     Route: 065
     Dates: start: 200505
  8. CITALOPRAM [Suspect]
     Active Substance: CITALOPRAM\CITALOPRAM HYDROBROMIDE
     Dosage: UNK
     Route: 065
     Dates: start: 2013
  9. CITALOPRAM [Suspect]
     Active Substance: CITALOPRAM\CITALOPRAM HYDROBROMIDE
     Dosage: 30 MILLIGRAM, QD (30 MG, QD)
     Route: 065
     Dates: start: 201407, end: 201503
  10. AMISULPRIDE [Suspect]
     Active Substance: AMISULPRIDE
     Indication: Affective disorder
     Dosage: 200 MILLIGRAM, QD (200MG, QD)
     Route: 065
     Dates: start: 200301
  11. AMISULPRIDE [Suspect]
     Active Substance: AMISULPRIDE
     Dosage: 100 MILLIGRAM, QD (100 MG, QD)
     Route: 065
     Dates: start: 200307
  12. AMISULPRIDE [Suspect]
     Active Substance: AMISULPRIDE
     Dosage: UNK, EVERY 12 HRS (UNKNOWN DOSE IN THE MORNING, 100MG IN THE EVENING)
     Route: 065
     Dates: start: 200311
  13. AMISULPRIDE [Suspect]
     Active Substance: AMISULPRIDE
     Dosage: UNK, QD (UNK UNK, QD)
     Route: 065
     Dates: start: 2004
  14. AMISULPRIDE [Suspect]
     Active Substance: AMISULPRIDE
     Dosage: 100 MILLIGRAM, QD (100 MG, QD)
     Route: 065
     Dates: start: 200407
  15. AMISULPRIDE [Suspect]
     Active Substance: AMISULPRIDE
     Dosage: 50 MILLIGRAM, QD (50 MG, QD)
     Route: 065
     Dates: start: 200505
  16. AMISULPRIDE [Suspect]
     Active Substance: AMISULPRIDE
     Dosage: 50 MILLIGRAM, EVERY 12 HRS (50 MG, BID)
     Route: 065
     Dates: start: 2013
  17. AMISULPRIDE [Suspect]
     Active Substance: AMISULPRIDE
     Dosage: 50 MILLIGRAM, EVERY 12 HRS (50 MG, BID)
     Route: 065
     Dates: start: 201407, end: 201503
  18. AMISULPRIDE [Suspect]
     Active Substance: AMISULPRIDE
     Dosage: 200 MILLIGRAM, EVERY 12 HRS (200 MG, BID)
     Route: 065
     Dates: start: 201509
  19. AMISULPRIDE [Suspect]
     Active Substance: AMISULPRIDE
     Dosage: UNK (200MG TWICE DAILY, 600MG AT NIGHT)
     Route: 065
     Dates: start: 201605
  20. AMISULPRIDE [Suspect]
     Active Substance: AMISULPRIDE
     Dosage: UNK, EVERY 12 HRS (200MG IN THE MORNING, 600MG AT NIGHT)
     Route: 065
     Dates: start: 201606
  21. AMISULPRIDE [Suspect]
     Active Substance: AMISULPRIDE
     Dosage: UNK, EVERY 12 HRS (100 MG MORNING 400 MG EVENING)
     Route: 065
     Dates: start: 201607
  22. AMISULPRIDE [Suspect]
     Active Substance: AMISULPRIDE
     Dosage: UNK
     Route: 065
     Dates: start: 202201
  23. CARIPRAZINE [Suspect]
     Active Substance: CARIPRAZINE
     Indication: Product used for unknown indication
     Dosage: 3 MILLIGRAM, QD (3 MG, QD)
     Route: 065
     Dates: start: 202208
  24. CARIPRAZINE [Suspect]
     Active Substance: CARIPRAZINE
     Dosage: 6 MILLIGRAM, QD (6 MG, QD)
     Route: 065
     Dates: start: 200212, end: 202303
  25. CARIPRAZINE [Suspect]
     Active Substance: CARIPRAZINE
     Dosage: 6 MILLIGRAM, QD (6 MG, QD)
     Route: 065
     Dates: start: 202303, end: 202305
  26. CLOZARIL [Suspect]
     Active Substance: CLOZAPINE
     Indication: Schizophrenia
     Dosage: UNK, EVERY 12 HRS (100MG IN THE MORNING, 400MG IN THE EVENING)
     Route: 065
     Dates: start: 200301
  27. CLOZARIL [Suspect]
     Active Substance: CLOZAPINE
     Indication: Schizoaffective disorder
     Dosage: UNK, EVERY 12 HRS (100MG IN THE MORNING, 400MG IN THE EVENING)
     Route: 065
     Dates: start: 200307
  28. CLOZARIL [Suspect]
     Active Substance: CLOZAPINE
     Dosage: UNK, EVERY 12 HRS (100MG IN THE MORNING, 400MG IN THE EVENING)
     Route: 065
     Dates: start: 200311
  29. CLOZARIL [Suspect]
     Active Substance: CLOZAPINE
     Dosage: UNK, EVERY 12 HRS (100MG IN THE MORNING, 400MG IN THE EVENING)
     Route: 065
     Dates: start: 200407
  30. CLOZARIL [Suspect]
     Active Substance: CLOZAPINE
     Dosage: UNK (100MG IN THE MORNING, 400MG IN THE EVENING)
     Route: 065
     Dates: start: 200411
  31. CLOZARIL [Suspect]
     Active Substance: CLOZAPINE
     Dosage: UNK, EVERY 12 HRS (100MG IN THE MORNING, 400MG IN THE EVENING)
     Route: 065
     Dates: start: 200505
  32. CLOZARIL [Suspect]
     Active Substance: CLOZAPINE
     Dosage: UNK, EVERY 12 HRS (100MG IN THE MORNING, 400MG IN THE EVENING)
     Route: 065
     Dates: start: 200511
  33. CLOZARIL [Suspect]
     Active Substance: CLOZAPINE
     Dosage: 350 MILLIGRAM, QD (350 MG QD IN THE EVENING)
     Route: 065
     Dates: start: 200605
  34. CLOZARIL [Suspect]
     Active Substance: CLOZAPINE
     Dosage: 375 MILLIGRAM, QD (375MG IN THE EVENING)
     Route: 065
     Dates: start: 200605
  35. CLOZARIL [Suspect]
     Active Substance: CLOZAPINE
     Dosage: 325 MILLIGRAM, QD (325MG IN THE EVENING
     Route: 065
     Dates: start: 200806
  36. CLOZARIL [Suspect]
     Active Substance: CLOZAPINE
     Dosage: 275 MILLIGRAM, QD (275MG IN THE EVENING)
     Route: 065
     Dates: start: 200811
  37. CLOZARIL [Suspect]
     Active Substance: CLOZAPINE
     Dosage: 250 MILLIGRAM, QD (250MG IN THE EVENING)
     Route: 065
     Dates: start: 200909
  38. CLOZARIL [Suspect]
     Active Substance: CLOZAPINE
     Dosage: 225 MILLIGRAM, QD (225MG IN THE EVENING
     Route: 065
     Dates: start: 201008
  39. CLOZARIL [Suspect]
     Active Substance: CLOZAPINE
     Dosage: 200 MILLIGRAM, QD (200MG IN THE EVENING)
     Route: 065
     Dates: start: 201012, end: 201201
  40. CLOZARIL [Suspect]
     Active Substance: CLOZAPINE
     Dosage: 500 MILLIGRAM, QD (500 MG, QD)
     Route: 065
     Dates: start: 2013
  41. CLOZARIL [Suspect]
     Active Substance: CLOZAPINE
     Dosage: UNK (100MG IN THE MORNING, 300MG AT NIGHT)
     Route: 065
     Dates: start: 201407, end: 201503
  42. CLOZARIL [Suspect]
     Active Substance: CLOZAPINE
     Dosage: UNK, EVERY 12 HRS (50MG IN THE MORNING, 250MG IN THE EVENING)
     Route: 065
     Dates: start: 201509
  43. CLOZARIL [Suspect]
     Active Substance: CLOZAPINE
     Dosage: UNK, EVERY 12 HRS (200MG IN THE MORNING, 300MG AT NIGHT)
     Route: 065
     Dates: start: 201605
  44. CLOZARIL [Suspect]
     Active Substance: CLOZAPINE
     Dosage: UNK, EVERY 12 HRS (200MG IN THE MORNING, 300MG AT NIGHT)
     Route: 065
     Dates: start: 201606
  45. CLOZARIL [Suspect]
     Active Substance: CLOZAPINE
     Dosage: UNK (200MG IN THE MORNING, 300MG AT NIGHT)
     Route: 065
     Dates: start: 201607
  46. CLOZARIL [Suspect]
     Active Substance: CLOZAPINE
     Dosage: UNK, EVERY 12 HRS (200MG IN THE MORNING, 300MG AT NIGHT)
     Route: 065
     Dates: start: 201611
  47. CLOZARIL [Suspect]
     Active Substance: CLOZAPINE
     Dosage: 400 MILLIGRAM, QD (400 MG, HS)
     Route: 065
     Dates: start: 201701
  48. CLOZARIL [Suspect]
     Active Substance: CLOZAPINE
     Dosage: 450 MILLIGRAM, QD (450 MG, HS)
     Route: 065
     Dates: start: 2019
  49. CLOZARIL [Suspect]
     Active Substance: CLOZAPINE
     Dosage: 225 MILLIGRAM, EVERY 12 HRS (225 MG, BID)
     Route: 065
     Dates: start: 201910, end: 20220112
  50. CLOZARIL [Suspect]
     Active Substance: CLOZAPINE
     Dosage: UNK
     Route: 048
     Dates: start: 20230720
  51. FERROUS SULFATE\FOLIC ACID [Suspect]
     Active Substance: FERROUS SULFATE\FOLIC ACID
     Indication: Product used for unknown indication
     Dosage: UNK
     Route: 065
  52. FLUPENTIXOL DECANOATE [Suspect]
     Active Substance: FLUPENTIXOL DECANOATE
     Indication: Product used for unknown indication
     Dosage: 400 MILLIGRAM, ONCE A WEEK (400 MG, QW)
     Route: 065
     Dates: start: 202208
  53. FLUPENTIXOL DECANOATE [Suspect]
     Active Substance: FLUPENTIXOL DECANOATE
     Dosage: 200 MILLIGRAM, ONCE A WEEK (200 MG, QW)
     Route: 065
     Dates: start: 200212, end: 202303
  54. FLUPENTIXOL DECANOATE [Suspect]
     Active Substance: FLUPENTIXOL DECANOATE
     Dosage: 200 MILLIGRAM, ONCE A WEEK (200 MG, QW)
     Route: 065
     Dates: start: 200303, end: 202305
  55. RISPERIDONE [Suspect]
     Active Substance: RISPERIDONE
     Indication: Product used for unknown indication
     Dosage: UNK
     Route: 065
     Dates: start: 200210
  56. RISPERIDONE [Suspect]
     Active Substance: RISPERIDONE
     Dosage: UNK
     Route: 065
     Dates: start: 201302
  57. VALPROATE SODIUM [Suspect]
     Active Substance: VALPROATE SODIUM
     Indication: Product used for unknown indication
     Dosage: 750 MILLIGRAM, EVERY 12 HRS (750 MG, BID)
     Route: 065
     Dates: start: 201605
  58. VALPROATE SODIUM [Suspect]
     Active Substance: VALPROATE SODIUM
     Dosage: 750 MILLIGRAM, EVERY 12 HRS (500 MG, BID)
     Route: 065
     Dates: start: 201606
  59. VALPROATE SODIUM [Suspect]
     Active Substance: VALPROATE SODIUM
     Dosage: 500 MILLIGRAM, EVERY 12 HRS (500 MG, BID)
     Route: 065
     Dates: start: 201607
  60. VALPROATE SODIUM [Suspect]
     Active Substance: VALPROATE SODIUM
     Dosage: 750 MILLIGRAM, EVERY 12 HRS (750 MG, BID)
     Route: 065
     Dates: start: 202303, end: 202305
  61. CHOLECALCIFEROL [Concomitant]
     Active Substance: CHOLECALCIFEROL
     Indication: Product used for unknown indication
     Dosage: 800 INTERNATIONAL UNIT, QD (800 IU, QD)
     Route: 065
  62. FLEXITOL HEEL [Concomitant]
     Indication: Product used for unknown indication
     Dosage: UNK, EVERY 12 HRS (UNK UNK, BID)
     Route: 065
  63. FOLIC ACID\IRON\MINERALS\VITAMINS [Concomitant]
     Active Substance: FOLIC ACID\IRON\MINERALS\VITAMINS
     Indication: Product used for unknown indication
     Dosage: 1 DOSAGE FORM, QD (ONE TABLET ONCE DAILY)
     Route: 065
  64. LACTULOSE [Concomitant]
     Active Substance: LACTULOSE
     Indication: Product used for unknown indication
     Dosage: 15 MILLILITER, TID (15 MILLILITER (MAX THREE TIMES DAILY))
     Route: 065
  65. ACETAMINOPHEN [Concomitant]
     Active Substance: ACETAMINOPHEN
     Indication: Product used for unknown indication
     Dosage: 1 GRAM (MAX 4G IN 24 HOURS)
     Route: 065
  66. PROCYCLIDINE [Concomitant]
     Active Substance: PROCYCLIDINE
     Indication: Product used for unknown indication
     Dosage: 2.5 MILLIGRAM (MAX 10MG IN 24 HOURS)
     Route: 065
  67. PROMETHAZINE [Concomitant]
     Active Substance: PROMETHAZINE HYDROCHLORIDE
     Indication: Product used for unknown indication
     Dosage: 25 MILLIGRAM (MAX 100MG IN 25 HOURS)
     Route: 065
  68. THIAMINE [Concomitant]
     Active Substance: THIAMINE
     Indication: Product used for unknown indication
     Dosage: 100 MILLIGRAM, EVERY 12 HRS (100 MG, BID)
     Route: 065
  69. VITAMIN B12 [Concomitant]
     Active Substance: CYANOCOBALAMIN
     Indication: Product used for unknown indication
     Dosage: 1 DOSAGE FORM, EVERY 12 HRS (1 DF, BID)
     Route: 065
  70. ENSURE COMPACT [Concomitant]
     Indication: Product used for unknown indication
     Dosage: UNK
     Route: 065

REACTIONS (33)
  - Delusion [Not Recovered/Not Resolved]
  - Delusion of grandeur [Unknown]
  - Neglect of personal appearance [Unknown]
  - Pneumonia aspiration [Unknown]
  - Acne [Unknown]
  - Red blood cell sedimentation rate decreased [Unknown]
  - Psoriasis [Unknown]
  - Vitamin D decreased [Unknown]
  - Thinking abnormal [Not Recovered/Not Resolved]
  - COVID-19 [Unknown]
  - Slow speech [Unknown]
  - Strabismus [Unknown]
  - Hallucination, auditory [Not Recovered/Not Resolved]
  - Eating disorder [Unknown]
  - Drug ineffective [Unknown]
  - Cardiac arrest [Unknown]
  - Suicidal ideation [Unknown]
  - Blood prolactin increased [Unknown]
  - Depressed mood [Unknown]
  - Mental impairment [Unknown]
  - Dystonia [Unknown]
  - Sedation [Unknown]
  - Neutrophil count decreased [Not Recovered/Not Resolved]
  - Lymphocyte count decreased [Unknown]
  - Aggression [Unknown]
  - Weight decreased [Unknown]
  - Insomnia [Unknown]
  - Orthostatic hypotension [Unknown]
  - Withdrawal syndrome [Unknown]
  - Accidental exposure to product [Unknown]
  - Treatment noncompliance [Unknown]
  - Overdose [Unknown]
  - Off label use [Unknown]

NARRATIVE: CASE EVENT DATE: 20021001
